FAERS Safety Report 20792474 (Version 3)
Quarter: 2022Q2

REPORT INFORMATION
  Report Type: Spontaneous
  Country: PT (occurrence: PT)
  Receive Date: 20220506
  Receipt Date: 20220530
  Transmission Date: 20220720
  Serious: Yes (Other)
  Sender: FDA-Public Use
  Company Number: PT-002147023-NVSC2022PT093656

PATIENT
  Age: 41 Year
  Sex: Male

DRUGS (1)
  1. REMICADE [Suspect]
     Active Substance: INFLIXIMAB
     Indication: Crohn^s disease
     Dosage: STARTED AT 30 YEARS OLD
     Route: 042

REACTIONS (2)
  - Crohn^s disease [Unknown]
  - Extranodal marginal zone B-cell lymphoma (MALT type) [Recovered/Resolved]
